FAERS Safety Report 25900445 (Version 1)
Quarter: 2025Q4

REPORT INFORMATION
  Report Type: Spontaneous
  Country: CN (occurrence: CN)
  Receive Date: 20251009
  Receipt Date: 20251009
  Transmission Date: 20260118
  Serious: Yes (Other)
  Sender: Onesource Specialty Pharma
  Company Number: CN-STRIDES ARCOLAB LIMITED-2025OS000884

PATIENT
  Age: 45 Year
  Sex: Female

DRUGS (29)
  1. ETOPOSIDE [Suspect]
     Active Substance: ETOPOSIDE
     Indication: Neuroendocrine carcinoma of the cervix
     Dosage: RECEIVED 3 CYCLES AT THE TIME OF THIS REPORT
     Route: 065
     Dates: start: 20240608
  2. ETOPOSIDE [Suspect]
     Active Substance: ETOPOSIDE
     Dosage: CONTINUED
     Route: 065
     Dates: start: 20240817
  3. CISPLATIN [Suspect]
     Active Substance: CISPLATIN
     Indication: Neuroendocrine carcinoma of the cervix
     Dosage: RECEIVED 2 CYCLES
     Route: 065
     Dates: start: 20240206
  4. CISPLATIN [Suspect]
     Active Substance: CISPLATIN
     Dosage: SECOND CYCLE
     Route: 065
     Dates: start: 20240307, end: 20240329
  5. CISPLATIN [Suspect]
     Active Substance: CISPLATIN
     Dosage: RECEIVED 6 ADDITIONAL CYCLES AT THE TIME OF REPORT
     Route: 065
     Dates: start: 20240420
  6. CISPLATIN [Suspect]
     Active Substance: CISPLATIN
     Dosage: DURING THE FOURTH CYCLE
     Route: 065
     Dates: start: 20240513
  7. CISPLATIN [Suspect]
     Active Substance: CISPLATIN
     Dosage: DURING THE FIFTH CYCLE
     Route: 065
     Dates: start: 20240608
  8. CISPLATIN [Suspect]
     Active Substance: CISPLATIN
     Dosage: CONTINUED
     Route: 065
     Dates: start: 20240817
  9. TISLELIZUMAB [Suspect]
     Active Substance: TISLELIZUMAB
     Indication: Neuroendocrine carcinoma of the cervix
     Dosage: RECEIVED A TOTAL OF 9 CYCLES OF TREATMENT  AT THE TIME OF REPORT
     Route: 065
     Dates: start: 20240307
  10. TISLELIZUMAB [Suspect]
     Active Substance: TISLELIZUMAB
     Dosage: DURING THE THIRD CYCLE TREATMENT CONTINUED
     Route: 065
     Dates: start: 20240329
  11. TISLELIZUMAB [Suspect]
     Active Substance: TISLELIZUMAB
     Dosage: DURING THE THIRD CYCLE TREATMENT CONTINUED
     Route: 065
     Dates: start: 20240420
  12. TISLELIZUMAB [Suspect]
     Active Substance: TISLELIZUMAB
     Dosage: DURING THE FOURTH CYCLE
     Route: 065
     Dates: start: 20240513
  13. TISLELIZUMAB [Suspect]
     Active Substance: TISLELIZUMAB
     Dosage: DURING THE FIFTH CYCLE
     Route: 065
     Dates: start: 20240608
  14. TISLELIZUMAB [Suspect]
     Active Substance: TISLELIZUMAB
     Dosage: CONTINUED
     Route: 065
     Dates: start: 20240817
  15. BEVACIZUMAB [Suspect]
     Active Substance: BEVACIZUMAB
     Indication: Neuroendocrine carcinoma of the cervix
     Dosage: RECEIVED A TOTAL OF 6 CYCLES AT THE TIME OF THIS REPORT
     Route: 065
     Dates: start: 20240420
  16. BEVACIZUMAB [Suspect]
     Active Substance: BEVACIZUMAB
     Dosage: DURING THE FOURTH CYCLE
     Route: 065
     Dates: start: 20240413
  17. BEVACIZUMAB [Suspect]
     Active Substance: BEVACIZUMAB
     Dosage: DURING THE FIFTH CYCLE
     Route: 065
     Dates: start: 20240608
  18. BEVACIZUMAB [Suspect]
     Active Substance: BEVACIZUMAB
     Dosage: CONTINUED
     Route: 065
     Dates: start: 20240817
  19. SODIUM [Concomitant]
     Active Substance: SODIUM
     Indication: Supplementation therapy
     Dosage: UNK
     Route: 065
     Dates: start: 202402, end: 202402
  20. SODIUM [Concomitant]
     Active Substance: SODIUM
     Dosage: UNK
     Route: 065
     Dates: start: 20240307, end: 202403
  21. SODIUM [Concomitant]
     Active Substance: SODIUM
     Dosage: RECEIVED LONG TERM THERAPY
     Route: 042
     Dates: start: 202406
  22. SODIUM [Concomitant]
     Active Substance: SODIUM
     Dosage: RECEIVED LONG TERM THERAPY
     Route: 048
     Dates: start: 202406
  23. PACLITAXEL [Concomitant]
     Active Substance: PACLITAXEL
     Indication: Neuroendocrine carcinoma of the cervix
     Dosage: RECEIVED 4 CYCLES
     Route: 065
     Dates: start: 20240206
  24. PACLITAXEL [Concomitant]
     Active Substance: PACLITAXEL
     Dosage: SECOND CYCLE
     Route: 065
     Dates: start: 20240307
  25. PACLITAXEL [Concomitant]
     Active Substance: PACLITAXEL
     Dosage: DURING THE THIRD CYCLE
     Route: 065
     Dates: start: 20240329
  26. PACLITAXEL [Concomitant]
     Active Substance: PACLITAXEL
     Dosage: DURING THE THIRD CYCLE
     Route: 065
     Dates: start: 20240420
  27. PACLITAXEL [Concomitant]
     Active Substance: PACLITAXEL
     Dosage: DURING THE FOURTH CYCLE
     Route: 065
     Dates: start: 20240513
  28. CARBOPLATIN [Concomitant]
     Active Substance: CARBOPLATIN
     Indication: Neuroendocrine carcinoma of the cervix
     Dosage: RECEIVED ONE CYCLE
     Route: 065
     Dates: start: 20240329, end: 20240420
  29. TOLVAPTAN [Concomitant]
     Active Substance: TOLVAPTAN
     Indication: Evidence based treatment
     Route: 065
     Dates: start: 202404

REACTIONS (2)
  - Neoplasm progression [Unknown]
  - Off label use [Unknown]
